FAERS Safety Report 20701013 (Version 1)
Quarter: 2022Q2

REPORT INFORMATION
  Report Type: Spontaneous
  Country: US (occurrence: None)
  Receive Date: 20220411
  Receipt Date: 20220411
  Transmission Date: 20220721
  Serious: Yes (Other)
  Sender: FDA-Public Use
  Company Number: None

PATIENT
  Age: 23 Year
  Sex: Female
  Weight: 90 kg

DRUGS (2)
  1. .DELTA.8-TETRAHYDROCANNABINOL\HERBALS [Suspect]
     Active Substance: .DELTA.8-TETRAHYDROCANNABINOL\HERBALS
     Indication: Substance use
     Dosage: OTHER QUANTITY : 2 GUMMIES;?
     Route: 048
     Dates: start: 20220410, end: 20220410
  2. VITAMINS [Concomitant]
     Active Substance: VITAMINS

REACTIONS (9)
  - Dizziness [None]
  - Hypoacusis [None]
  - Feeling abnormal [None]
  - Feeling abnormal [None]
  - Dry mouth [None]
  - Dysphagia [None]
  - Migraine [None]
  - Diarrhoea [None]
  - Adverse reaction [None]

NARRATIVE: CASE EVENT DATE: 20220410
